FAERS Safety Report 4528505-3 (Version None)
Quarter: 2004Q4

REPORT INFORMATION
  Report Type: 
  Country: None (occurrence: None)
  Receive Date: 20041216
  Receipt Date: 20031003
  Transmission Date: 20050328
  Serious: No
  Sender: FDA-Public Use
  Company Number: US-RB-184-2003

PATIENT
  Sex: Male
  Weight: 81.72 kg

DRUGS (1)
  1. SUBOXONE [Suspect]
     Indication: DRUG DEPENDENCE
     Route: 060
     Dates: start: 20030618

REACTIONS (1)
  - SEXUAL DYSFUNCTION [None]
